FAERS Safety Report 7572882-6 (Version None)
Quarter: 2011Q2

REPORT INFORMATION
  Report Type: 
  Country: None (occurrence: None)
  Receive Date: 20110627
  Receipt Date: 20110614
  Transmission Date: 20111010
  Serious: Yes (Hospitalization)
  Sender: FDA-Public Use
  Company Number: DK-ELI_LILLY_AND_COMPANY-DK201106005147

PATIENT
  Sex: Male
  Weight: 78 kg

DRUGS (2)
  1. AMITRIPTYLINE HCL [Concomitant]
     Indication: DEPRESSION
     Dosage: 75 MG, QD
     Dates: start: 20090310
  2. DULOXETINE HYDROCHLORIDE [Suspect]
     Indication: DEPRESSION
     Dosage: 30 MG, QD
     Route: 048
     Dates: start: 20090310

REACTIONS (8)
  - DYSURIA [None]
  - HYPERHIDROSIS [None]
  - HEADACHE [None]
  - CONSTIPATION [None]
  - APATHY [None]
  - GAIT DISTURBANCE [None]
  - CEREBRAL HAEMATOMA [None]
  - ARTHRALGIA [None]
